FAERS Safety Report 10606775 (Version 1)
Quarter: 2014Q4

REPORT INFORMATION
  Report Type: Spontaneous
  Country: US (occurrence: None)
  Receive Date: 20141124
  Receipt Date: 20141124
  Transmission Date: 20150529
  Serious: Yes (Hospitalization)
  Sender: FDA-Public Use
  Company Number: None

PATIENT
  Age: 29 Year
  Sex: Female

DRUGS (1)
  1. ORTHO EVRA [Suspect]
     Active Substance: ETHINYL ESTRADIOL\NORELGESTROMIN
     Indication: CONTRACEPTION
     Dates: start: 20130726, end: 201309

REACTIONS (11)
  - Cholestasis [None]
  - Fatigue [None]
  - Pelvic inflammatory disease [None]
  - Jaundice [None]
  - Pruritus [None]
  - Blood bilirubin increased [None]
  - Blood alkaline phosphatase increased [None]
  - Dysuria [None]
  - Drug-induced liver injury [None]
  - Transaminases increased [None]
  - Gardnerella test positive [None]

NARRATIVE: CASE EVENT DATE: 20130825
